FAERS Safety Report 14349532 (Version 1)
Quarter: 2018Q1

REPORT INFORMATION
  Report Type: Spontaneous
  Country: GB (occurrence: GB)
  Receive Date: 20180104
  Receipt Date: 20180104
  Transmission Date: 20180509
  Serious: Yes (Other)
  Sender: FDA-Public Use
  Company Number: GB-ABBVIE-18S-167-2211528-00

PATIENT
  Age: 34 Year
  Sex: Female
  Weight: 95.25 kg

DRUGS (2)
  1. FLUCLOXACILLIN SODIUM [Interacting]
     Active Substance: FLUCLOXACILLIN
     Indication: INFECTED CYST
     Route: 048
  2. CLARITHROMYCIN. [Suspect]
     Active Substance: CLARITHROMYCIN
     Indication: PRODUCT USED FOR UNKNOWN INDICATION
     Route: 065

REACTIONS (3)
  - Nausea [Not Recovered/Not Resolved]
  - Drug interaction [Unknown]
  - Eructation [Unknown]

NARRATIVE: CASE EVENT DATE: 20171202
